FAERS Safety Report 5829260-7 (Version None)
Quarter: 2008Q3

REPORT INFORMATION
  Report Type: 
  Country: None (occurrence: None)
  Receive Date: 20080731
  Receipt Date: 20080710
  Transmission Date: 20090109
  Serious: No
  Sender: FDA-Public Use
  Company Number: US-BOEHRINGER INGELHEIM GMBH, GERMANY-2008-BP-10815BP

PATIENT
  Age: 52 Year
  Sex: Female

DRUGS (3)
  1. MIRAPEX [Suspect]
     Indication: RESTLESS LEGS SYNDROME
     Route: 048
     Dates: start: 20040101
  2. LEXAPRO [Concomitant]
     Indication: ANXIETY
  3. PREVACID [Concomitant]
     Indication: GASTROOESOPHAGEAL REFLUX DISEASE

REACTIONS (10)
  - ABNORMAL SENSATION IN EYE [None]
  - ACNE [None]
  - ALOPECIA [None]
  - ANAEMIA [None]
  - BONE PAIN [None]
  - GASTRITIS [None]
  - GASTROOESOPHAGEAL REFLUX DISEASE [None]
  - GLAUCOMA [None]
  - PAIN IN EXTREMITY [None]
  - SINUS DISORDER [None]
